FAERS Safety Report 10384931 (Version 1)
Quarter: 2014Q1

REPORT INFORMATION
  Report Type: Spontaneous
  Country: US (occurrence: None)
  Receive Date: 20140306
  Receipt Date: 20140306
  Transmission Date: 20141002
  Serious: Yes (Hospitalization)
  Sender: FDA-Public Use
  Company Number: 163-21880-13042441

PATIENT
  Age: 77 Year
  Sex: Male

DRUGS (1)
  1. REVLIMID (LENALIDOMIDE) (15 MILLIGRAM, CAPSULES) [Suspect]
     Indication: PLASMA CELL MYELOMA
     Route: 048
     Dates: start: 20130221, end: 20130302

REACTIONS (5)
  - Dyspnoea [None]
  - Fatigue [None]
  - Tremor [None]
  - Decreased appetite [None]
  - Pneumonia [None]
